FAERS Safety Report 6788199-3 (Version None)
Quarter: 2010Q2

REPORT INFORMATION
  Report Type: 
  Country: None (occurrence: None)
  Receive Date: 20100623
  Receipt Date: 20080109
  Transmission Date: 20101027
  Serious: No
  Sender: FDA-Public Use
  Company Number: US-PFIZER INC-2008003256

PATIENT
  Sex: Female
  Weight: 100 kg

DRUGS (5)
  1. MEDROXYPROGESTERONE ACETATE [Suspect]
     Indication: OFF LABEL USE
     Route: 030
     Dates: start: 20070701
  2. MEDROXYPROGESTERONE ACETATE [Suspect]
     Indication: MENSTRUAL DISCOMFORT
  3. CARDIZEM [Concomitant]
  4. ALLEGRA [Concomitant]
  5. IRON [Concomitant]

REACTIONS (1)
  - VAGINAL HAEMORRHAGE [None]
